FAERS Safety Report 24344701 (Version 1)
Quarter: 2024Q3

REPORT INFORMATION
  Report Type: Other
  Country: US (occurrence: US)
  Receive Date: 20240920
  Receipt Date: 20240920
  Transmission Date: 20241017
  Serious: No
  Sender: Alora Pharma
  Company Number: US-ACELLA PHARMACEUTICALS, LLC-2024ALO00130

PATIENT
  Age: 8 Year
  Sex: Female
  Weight: 28.345 kg

DRUGS (2)
  1. METHYLPHENIDATE HYDROCHLORIDE [Suspect]
     Active Substance: METHYLPHENIDATE HYDROCHLORIDE
     Indication: Attention deficit hyperactivity disorder
     Dosage: 36 MG, 1X/DAY
     Route: 048
     Dates: start: 202401, end: 2024
  2. MELATONIN [Concomitant]
     Active Substance: MELATONIN

REACTIONS (5)
  - Anxiety [Recovering/Resolving]
  - Irritability [Recovering/Resolving]
  - Therapeutic response decreased [Recovered/Resolved]
  - Product substitution issue [Recovered/Resolved]
  - Condition aggravated [Unknown]

NARRATIVE: CASE EVENT DATE: 20240101
